FAERS Safety Report 9391480 (Version 1)
Quarter: 2013Q3

REPORT INFORMATION
  Report Type: Spontaneous
  Country: PT (occurrence: PT)
  Receive Date: 20130709
  Receipt Date: 20130709
  Transmission Date: 20140515
  Serious: Yes (Other)
  Sender: FDA-Public Use
  Company Number: PT-ACTAVIS-2013-11957

PATIENT
  Age: 41 Year
  Sex: Female

DRUGS (1)
  1. DOCETAXEL (UNKNOWN) [Suspect]
     Indication: PRODUCT USED FOR UNKNOWN INDICATION
     Dosage: UNK
     Route: 042
     Dates: start: 20130611

REACTIONS (8)
  - Stomatitis [Recovering/Resolving]
  - Vaginal inflammation [Recovering/Resolving]
  - Anal inflammation [Recovering/Resolving]
  - Rash pustular [Recovering/Resolving]
  - Rash [Recovering/Resolving]
  - Exfoliative rash [Recovering/Resolving]
  - Pyrexia [Recovering/Resolving]
  - Wound [Recovering/Resolving]
